FAERS Safety Report 4365112-X (Version None)
Quarter: 2004Q2

REPORT INFORMATION
  Report Type: 
  Country: None (occurrence: None)
  Receive Date: 20040520
  Receipt Date: 20040506
  Transmission Date: 20050107
  Serious: Yes (Hospitalization)
  Sender: FDA-Public Use
  Company Number: HQWYE812811MAY04

PATIENT
  Age: 37 Year
  Sex: Male

DRUGS (3)
  1. RAPAMUNE [Suspect]
     Indication: PROPHYLAXIS AGAINST TRANSPLANT REJECTION
     Dosage: 2 MG 1X PER 1 DAY
     Route: 048
     Dates: start: 20040404, end: 20040506
  2. CYCLOSPORINE [Suspect]
     Dosage: 300 MG 1X PER 1 DAY
     Route: 048
     Dates: start: 20040406, end: 20040430
  3. PREDNISONE [Concomitant]

REACTIONS (1)
  - THROMBOTIC MICROANGIOPATHY [None]
